FAERS Safety Report 14467156 (Version 1)
Quarter: 2018Q1

REPORT INFORMATION
  Report Type: Spontaneous
  Country: IT (occurrence: IT)
  Receive Date: 20180131
  Receipt Date: 20180131
  Transmission Date: 20180509
  Serious: Yes (Hospitalization, Other)
  Sender: FDA-Public Use
  Company Number: IT-AUROBINDO-AUR-APL-2018-003912

PATIENT
  Age: 22 Year
  Sex: Female

DRUGS (1)
  1. PARACETAMOL [Suspect]
     Active Substance: ACETAMINOPHEN
     Indication: COMPLETED SUICIDE
     Dosage: 35 G, ONCE ; IN TOTAL

REACTIONS (9)
  - Acute hepatic failure [Recovering/Resolving]
  - Suicide attempt [Unknown]
  - Abdominal pain upper [Unknown]
  - Coagulopathy [Unknown]
  - Intentional product misuse [Unknown]
  - Exposure during pregnancy [Unknown]
  - Hepatic enzyme increased [Unknown]
  - Asthenia [Unknown]
  - Decreased appetite [Unknown]
